FAERS Safety Report 10454967 (Version 2)
Quarter: 2014Q3

REPORT INFORMATION
  Report Type: Report from Study
  Country: US (occurrence: US)
  Receive Date: 20140915
  Receipt Date: 20140915
  Transmission Date: 20150326
  Serious: Yes (Hospitalization)
  Sender: FDA-Public Use
  Company Number: PHEH2014US014709

PATIENT
  Sex: Female
  Weight: 49.89 kg

DRUGS (2)
  1. GILENYA [Suspect]
     Active Substance: FINGOLIMOD HYDROCHLORIDE
     Dosage: 0.5 MG DAILY
     Route: 048
     Dates: start: 20140603
  2. GILENYA [Suspect]
     Active Substance: FINGOLIMOD HYDROCHLORIDE
     Indication: MULTIPLE SCLEROSIS
     Dosage: 0.5 MG DAILY
     Route: 048
     Dates: start: 20110531

REACTIONS (4)
  - Insomnia [Recovered/Resolved]
  - Platelet count decreased [Unknown]
  - Skin mass [Recovered/Resolved]
  - Immune thrombocytopenic purpura [Recovered/Resolved]
